FAERS Safety Report 19839560 (Version 1)
Quarter: 2021Q3

REPORT INFORMATION
  Report Type: Spontaneous
  Country: US (occurrence: US)
  Receive Date: 20210915
  Receipt Date: 20210915
  Transmission Date: 20211014
  Serious: Yes (Hospitalization)
  Sender: FDA-Public Use
  Company Number: None

PATIENT
  Age: 36 Year
  Sex: Male
  Weight: 66.5 kg

DRUGS (4)
  1. TAXOL [Suspect]
     Active Substance: PACLITAXEL
     Dates: end: 20190318
  2. CISPLATIN. [Suspect]
     Active Substance: CISPLATIN
     Dates: end: 20190322
  3. IFOSFAMIDE. [Suspect]
     Active Substance: IFOSFAMIDE
     Dates: end: 20190322
  4. G?CSF (FILGRASTIM, AMGEN) [Suspect]
     Active Substance: FILGRASTIM
     Dosage: ?          OTHER DOSE:48 MILLION IU  ;?
     Dates: end: 20190322

REACTIONS (9)
  - Neutrophil count decreased [None]
  - Pyrexia [None]
  - Lung infiltration [None]
  - Leukopenia [None]
  - Pneumonia [None]
  - Platelet count decreased [None]
  - C-reactive protein increased [None]
  - Infection [None]
  - Diarrhoea [None]

NARRATIVE: CASE EVENT DATE: 20190327
